FAERS Safety Report 4619682-4 (Version None)
Quarter: 2005Q1

REPORT INFORMATION
  Report Type: 
  Country: None (occurrence: None)
  Receive Date: 20050317
  Receipt Date: 20050317
  Transmission Date: 20050727
  Serious: Yes (Hospitalization)
  Sender: FDA-Public Use
  Company Number: None

PATIENT
  Age: 74 Year
  Sex: Male
  Weight: 70.7611 kg

DRUGS (2)
  1. ZOSYN [Suspect]
     Indication: PNEUMONIA
     Dosage: 3.375GM   Q6 HOURS   INTRAVENOU
     Route: 042
     Dates: start: 20050305, end: 20050314
  2. CIPRO [Suspect]
     Indication: PNEUMONIA
     Dosage: 400 MG    112 HOURS   INTRAVENOU
     Route: 042
     Dates: start: 20050305, end: 20050314

REACTIONS (1)
  - DIARRHOEA [None]
